FAERS Safety Report 9440503 (Version 1)
Quarter: 2013Q3

REPORT INFORMATION
  Report Type: Spontaneous
  Country: US (occurrence: US)
  Receive Date: 20130805
  Receipt Date: 20130805
  Transmission Date: 20140515
  Serious: No
  Sender: FDA-Public Use
  Company Number: US-009507513-1308USA001783

PATIENT
  Sex: Female
  Weight: 55.78 kg

DRUGS (7)
  1. MIRALAX [Suspect]
     Indication: CONSTIPATION
     Dosage: 34 G, QD
     Route: 048
  2. MIRALAX [Suspect]
     Indication: SHORT-BOWEL SYNDROME
  3. MIRALAX [Suspect]
     Indication: MEDICAL OBSERVATION
  4. LISINOPRIL [Concomitant]
     Indication: HYPERTENSION
     Dosage: UNK, UNKNOWN
  5. NORVASC [Concomitant]
     Indication: HYPERTENSION
     Dosage: UNK, UNKNOWN
  6. LINZESS [Concomitant]
     Indication: SHORT-BOWEL SYNDROME
     Dosage: UNK, UNKNOWN
  7. ANALGESIC (UNSPECIFIED) [Concomitant]
     Indication: PAIN
     Dosage: UNK, UNKNOWN

REACTIONS (4)
  - Overdose [Unknown]
  - Incorrect drug administration duration [Unknown]
  - Off label use [Unknown]
  - Product quality issue [Unknown]
